FAERS Safety Report 7245193-6 (Version None)
Quarter: 2011Q1

REPORT INFORMATION
  Report Type: 
  Country: None (occurrence: None)
  Receive Date: 20110126
  Receipt Date: 20110117
  Transmission Date: 20110831
  Serious: Yes (Hospitalization, Other)
  Sender: FDA-Public Use
  Company Number: PHHO2011IT01421

PATIENT
  Sex: Female
  Weight: 86 kg

DRUGS (9)
  1. BLINDED NO TREATMENT RECEIVED [Suspect]
     Dosage: CODE NOT BROKEN
     Route: 048
     Dates: start: 20101110
  2. CARVEDILOL [Concomitant]
  3. BLINDED ALISKIREN [Suspect]
     Dosage: CODE NOT BROKEN
     Route: 048
     Dates: start: 20101110
  4. WARFARIN [Concomitant]
  5. BLINDED ENALAPRIL [Suspect]
     Dosage: CODE NOT BROKEN
     Route: 048
     Dates: start: 20101110
  6. ATORVASTATIN CALCIUM [Concomitant]
  7. COMPARATOR ENALAPRIL [Suspect]
     Indication: CARDIAC FAILURE
  8. ALISKIREN [Suspect]
     Indication: CARDIAC FAILURE
  9. LANTUS [Concomitant]

REACTIONS (7)
  - BLOOD POTASSIUM DECREASED [None]
  - ACUTE RESPIRATORY FAILURE [None]
  - BUNDLE BRANCH BLOCK [None]
  - HYPERGLYCAEMIA [None]
  - DISEASE PROGRESSION [None]
  - DYSPNOEA [None]
  - CARDIAC FAILURE ACUTE [None]
